FAERS Safety Report 9773225 (Version 2)
Quarter: 2014Q1

REPORT INFORMATION
  Report Type: Spontaneous
  Country: US (occurrence: US)
  Receive Date: 20131219
  Receipt Date: 20140303
  Transmission Date: 20141002
  Serious: Yes (Hospitalization)
  Sender: FDA-Public Use
  Company Number: US-GLAXOSMITHKLINE-A1053762A

PATIENT
  Age: 22 Year
  Sex: Female

DRUGS (2)
  1. INFLUENZA VACCINE UNSPECIFIED [Suspect]
     Indication: PROPHYLAXIS
     Route: 065
     Dates: start: 2011, end: 2011
  2. VENTOLIN HFA [Suspect]
     Indication: ASTHMA
     Route: 055
     Dates: start: 2011

REACTIONS (6)
  - Pneumonia [Recovered/Resolved]
  - Nasopharyngitis [Recovered/Resolved]
  - Sinusitis [Recovered/Resolved]
  - Heart rate increased [Recovered/Resolved]
  - Cough [Unknown]
  - Dyspnoea [Unknown]
